FAERS Safety Report 9685171 (Version 1)
Quarter: 2013Q4

REPORT INFORMATION
  Report Type: Spontaneous
  Country: US (occurrence: None)
  Receive Date: 20131112
  Receipt Date: 20131112
  Transmission Date: 20140711
  Serious: No
  Sender: FDA-Public Use
  Company Number: None

PATIENT
  Age: 70 Year
  Sex: Male
  Weight: 79.38 kg

DRUGS (1)
  1. LUMIGAN 0.01% [Suspect]
     Indication: DRUG THERAPY
     Dosage: ONE DROP IN BOTH EYES ONCE DAILY INTO THE EYE
     Dates: start: 20121227, end: 20131030

REACTIONS (5)
  - Vision blurred [None]
  - Growth of eyelashes [None]
  - Eye colour change [None]
  - Miosis [None]
  - Eye pain [None]
